FAERS Safety Report 11156102 (Version 4)
Quarter: 2018Q3

REPORT INFORMATION
  Report Type: Report from Study
  Country: US (occurrence: US)
  Receive Date: 20150602
  Receipt Date: 20180713
  Transmission Date: 20181010
  Serious: Yes (Other)
  Sender: FDA-Public Use
  Company Number: US-SA-2014SA064223

PATIENT
  Age: 58 Year
  Sex: Female

DRUGS (8)
  1. CORTISONE [Concomitant]
     Active Substance: CORTISONE\HYDROCORTISONE
     Dosage: UNK UNK,UNK
     Route: 065
  2. TERIFLUNOMIDE [Suspect]
     Active Substance: TERIFLUNOMIDE
     Indication: MULTIPLE SCLEROSIS
     Dosage: 14 MG,QD
     Route: 048
     Dates: start: 20140413
  3. ERGOCALCIFEROL. [Concomitant]
     Active Substance: ERGOCALCIFEROL
     Dosage: UNK UNK,UNK
     Route: 065
  4. RITALIN [Concomitant]
     Active Substance: METHYLPHENIDATE HYDROCHLORIDE
     Dosage: UNK UNK,UNK
     Route: 065
  5. TERIFLUNOMIDE [Suspect]
     Active Substance: TERIFLUNOMIDE
     Dosage: 14 MG,QD
     Route: 048
     Dates: start: 20140518, end: 20150102
  6. TERIFLUNOMIDE [Suspect]
     Active Substance: TERIFLUNOMIDE
     Dosage: 14 MG,QD
     Route: 048
     Dates: start: 20150205
  7. PREDNISONE. [Concomitant]
     Active Substance: PREDNISONE
     Dosage: UNK UNK,UNK
     Route: 065
  8. TERIFLUNOMIDE [Suspect]
     Active Substance: TERIFLUNOMIDE
     Dosage: 14 MG,QD
     Route: 048
     Dates: end: 20140516

REACTIONS (50)
  - Balance disorder [Not Recovered/Not Resolved]
  - Vomiting [Recovered/Resolved]
  - Colitis [Recovering/Resolving]
  - Pain in extremity [Recovering/Resolving]
  - Cognitive disorder [Not Recovered/Not Resolved]
  - Impaired healing [Not Recovered/Not Resolved]
  - Hypoaesthesia [Unknown]
  - Paraesthesia [Unknown]
  - Confusional state [Not Recovered/Not Resolved]
  - Muscular weakness [Unknown]
  - Balance disorder [Unknown]
  - Pain in extremity [Unknown]
  - Product use issue [Unknown]
  - Accident [Unknown]
  - Scratch [Unknown]
  - Headache [Not Recovered/Not Resolved]
  - Feeling hot [Unknown]
  - Hypersensitivity [Not Recovered/Not Resolved]
  - Fatigue [Unknown]
  - Thyroid disorder [Unknown]
  - Abdominal discomfort [Recovered/Resolved]
  - Fall [Unknown]
  - Mammogram abnormal [Unknown]
  - Blood electrolytes abnormal [Unknown]
  - Tremor [Not Recovered/Not Resolved]
  - Vertigo [Not Recovered/Not Resolved]
  - Spinal cord injury cervical [Unknown]
  - Limb discomfort [Unknown]
  - Multiple sclerosis relapse [Unknown]
  - Unevaluable event [Unknown]
  - Gait disturbance [Unknown]
  - Grip strength decreased [Recovering/Resolving]
  - Laceration [Not Recovered/Not Resolved]
  - Spinal fracture [Unknown]
  - Skin exfoliation [Unknown]
  - Feeling abnormal [Unknown]
  - Hyperhidrosis [Recovering/Resolving]
  - Diarrhoea [Recovering/Resolving]
  - Knee arthroplasty [Unknown]
  - Blister [Unknown]
  - Neuropathy peripheral [Unknown]
  - Pruritus [Unknown]
  - Pain of skin [Unknown]
  - Peripheral swelling [Unknown]
  - Depression [Recovering/Resolving]
  - Asthenia [Unknown]
  - Memory impairment [Unknown]
  - Temperature intolerance [Unknown]
  - Condition aggravated [Unknown]
  - Stress [Unknown]

NARRATIVE: CASE EVENT DATE: 20140511
